FAERS Safety Report 18655422 (Version 1)
Quarter: 2020Q4

REPORT INFORMATION
  Report Type: Spontaneous
  Country: US (occurrence: US)
  Receive Date: 20201223
  Receipt Date: 20201223
  Transmission Date: 20210114
  Serious: Yes (Other)
  Sender: FDA-Public Use
  Company Number: US-PFIZER INC-2020498233

PATIENT
  Age: 5 Year

DRUGS (1)
  1. PHOSPHOLINE IODIDE [Suspect]
     Active Substance: ECHOTHIOPHATE IODIDE
     Indication: STRABISMUS
     Dosage: 0.125 %,IN EACH EYE EACH MORNING

REACTIONS (1)
  - Cholinergic syndrome [Recovered/Resolved]
